FAERS Safety Report 4546154-8 (Version None)
Quarter: 2005Q1

REPORT INFORMATION
  Report Type: 
  Country: None (occurrence: None)
  Receive Date: 20050105
  Receipt Date: 20050105
  Transmission Date: 20050727
  Serious: Yes (Hospitalization)
  Sender: FDA-Public Use
  Company Number: None

PATIENT
  Age: 22 Year
  Sex: Male

DRUGS (1)
  1. CARBAMAZEPINE [Suspect]
     Indication: MUSCLE SPASMS
     Dosage: 200MG  TID ORAL
     Route: 048
     Dates: start: 20041125, end: 20041225

REACTIONS (1)
  - STEVENS-JOHNSON SYNDROME [None]
